FAERS Safety Report 25916147 (Version 1)
Quarter: 2025Q4

REPORT INFORMATION
  Report Type: Spontaneous
  Country: EU (occurrence: EU)
  Receive Date: 20251014
  Receipt Date: 20251014
  Transmission Date: 20260118
  Serious: Yes (Hospitalization, Other)
  Sender: ACCORD
  Company Number: EU-Accord-508263

PATIENT
  Age: 32 Year
  Sex: Female

DRUGS (1)
  1. CLOZAPINE [Suspect]
     Active Substance: CLOZAPINE
     Indication: Product used for unknown indication

REACTIONS (4)
  - Agranulocytosis [Unknown]
  - Rash maculo-papular [Unknown]
  - Myelodysplastic syndrome [Unknown]
  - Generalised tonic-clonic seizure [Unknown]
